FAERS Safety Report 9982069 (Version 1)
Quarter: 2014Q1

REPORT INFORMATION
  Report Type: Report from Study
  Country: US (occurrence: US)
  Receive Date: 20140307
  Receipt Date: 20140307
  Transmission Date: 20141002
  Serious: No
  Sender: FDA-Public Use
  Company Number: US-ABBVIE-13P-163-1177943-00

PATIENT
  Age: 54 Year
  Sex: Female

DRUGS (7)
  1. HUMIRA [Suspect]
     Indication: PSORIATIC ARTHROPATHY
     Dates: start: 201308
  2. UNKNOWN MEDICATION [Concomitant]
     Indication: HAEMORRHAGE
  3. UNKNOWN MEDICATION [Concomitant]
     Indication: HAEMORRHAGE
  4. UNKNOWN SHAMPOO [Concomitant]
     Indication: HAEMORRHAGE
  5. PROAIR [Concomitant]
     Indication: HYPERSENSITIVITY
  6. UNKNOWN MEDICATION [Concomitant]
     Indication: BLOOD CHOLESTEROL INCREASED
  7. UNKNOWN MEDICATION [Concomitant]
     Indication: HYPERTENSION

REACTIONS (7)
  - Pain in extremity [Not Recovered/Not Resolved]
  - Psoriasis [Not Recovered/Not Resolved]
  - Psoriatic arthropathy [Not Recovered/Not Resolved]
  - Pain in extremity [Not Recovered/Not Resolved]
  - Pain [Not Recovered/Not Resolved]
  - Pruritus [Not Recovered/Not Resolved]
  - Haemorrhage [Not Recovered/Not Resolved]
